FAERS Safety Report 7178413-7 (Version None)
Quarter: 2010Q4

REPORT INFORMATION
  Report Type: 
  Country: None (occurrence: None)
  Receive Date: 20101220
  Receipt Date: 20101209
  Transmission Date: 20110411
  Serious: Yes (Other)
  Sender: FDA-Public Use
  Company Number: IE-ASTRAZENECA-2010SE49936

PATIENT
  Age: 66 Year
  Sex: Female

DRUGS (5)
  1. SYMBICORT [Suspect]
     Indication: DYSPNOEA
     Dosage: 200/6 MCG, TWO TIMES A DAY.
     Route: 055
     Dates: start: 20090909
  2. SYMBICORT [Suspect]
     Indication: ASTHMA
     Dosage: 200/6 MCG, TWO TIMES A DAY.
     Route: 055
     Dates: start: 20090909
  3. WARFARIN SODIUM [Concomitant]
     Dates: start: 20101001
  4. ZOCOR [Concomitant]
  5. OSTEOFOS D3 [Concomitant]

REACTIONS (6)
  - CHEST PAIN [None]
  - DRUG INEFFECTIVE [None]
  - DYSPNOEA [None]
  - HEART RATE INCREASED [None]
  - PAIN IN EXTREMITY [None]
  - PULMONARY EMBOLISM [None]
